FAERS Safety Report 18380433 (Version 1)
Quarter: 2020Q4

REPORT INFORMATION
  Report Type: Spontaneous
  Country: US (occurrence: US)
  Receive Date: 20201014
  Receipt Date: 20201014
  Transmission Date: 20210114
  Serious: No
  Sender: FDA-Public Use
  Company Number: US-ELI_LILLY_AND_COMPANY-US202007008347

PATIENT
  Sex: Male

DRUGS (1)
  1. CYMBALTA [Suspect]
     Active Substance: DULOXETINE HYDROCHLORIDE
     Indication: PRODUCT USED FOR UNKNOWN INDICATION
     Dosage: UNK UNK, UNKNOWN
     Route: 065
     Dates: end: 20200609

REACTIONS (5)
  - Headache [Unknown]
  - Insomnia [Not Recovered/Not Resolved]
  - Suffocation feeling [Unknown]
  - Drug withdrawal syndrome [Unknown]
  - Sleep disorder due to general medical condition, insomnia type [Unknown]
